FAERS Safety Report 5925377-7 (Version None)
Quarter: 2008Q4

REPORT INFORMATION
  Report Type: 
  Country: None (occurrence: None)
  Receive Date: 20081020
  Receipt Date: 20081020
  Transmission Date: 20090506
  Serious: Yes (Other)
  Sender: FDA-Public Use
  Company Number: None

PATIENT
  Age: 62 Year
  Sex: Male
  Weight: 102.0593 kg

DRUGS (1)
  1. CLONAZEPAM [Suspect]
     Indication: POSTPARTUM STRESS DISORDER
     Dosage: 0.5MG BID PO; 1MG QHS PO
     Route: 048
     Dates: start: 19900101, end: 20081008

REACTIONS (2)
  - ADVERSE DRUG REACTION [None]
  - THERAPEUTIC RESPONSE UNEXPECTED WITH DRUG SUBSTITUTION [None]
